FAERS Safety Report 23350703 (Version 1)
Quarter: 2023Q4

REPORT INFORMATION
  Report Type: Spontaneous
  Country: TR (occurrence: TR)
  Receive Date: 20231229
  Receipt Date: 20231229
  Transmission Date: 20240110
  Serious: Yes (Death, Life-Threatening, Other)
  Sender: FDA-Public Use
  Company Number: TR-CELLTRION INC.-2023TR024815

PATIENT

DRUGS (2)
  1. TRUXIMA [Suspect]
     Active Substance: RITUXIMAB-ABBS
     Indication: Castleman^s disease
     Dosage: 375 MG/M2, 1/WEEK
     Route: 042
  2. ETOPOSIDE [Suspect]
     Active Substance: ETOPOSIDE
     Indication: Castleman^s disease
     Dosage: 100 MG/M2, 1/WEEK

REACTIONS (5)
  - Hypernatraemia [Fatal]
  - Metabolic acidosis [Fatal]
  - Hypoxia [Fatal]
  - Septic shock [Fatal]
  - Drug effective for unapproved indication [Fatal]
